FAERS Safety Report 12737604 (Version 2)
Quarter: 2016Q4

REPORT INFORMATION
  Report Type: Report from Study
  Country: AU (occurrence: AU)
  Receive Date: 20160912
  Receipt Date: 20161109
  Transmission Date: 20170207
  Serious: Yes (Hospitalization, Other)
  Sender: FDA-Public Use
  Company Number: AU-OTSUKA-2016_014897

PATIENT
  Age: 79 Year
  Sex: Male
  Weight: 83 kg

DRUGS (3)
  1. DECITABINE. [Suspect]
     Active Substance: DECITABINE
     Indication: ACUTE MYELOID LEUKAEMIA
     Dosage: 37.8 MG, UNK
     Route: 042
     Dates: start: 20160530, end: 20160608
  2. *JNJ-56022473 [Suspect]
     Active Substance: INVESTIGATIONAL PRODUCT
     Dosage: 747 MG
     Route: 042
     Dates: end: 20160620
  3. *JNJ-56022473 [Suspect]
     Active Substance: INVESTIGATIONAL PRODUCT
     Indication: ACUTE MYELOID LEUKAEMIA
     Dosage: 747 MG, 1 IN 1 TOTAL DAY 8 AND DAY 22 OF EACH 28 DAY CYCLE
     Route: 042
     Dates: start: 20160608, end: 20160608

REACTIONS (2)
  - Pulmonary embolism [Recovering/Resolving]
  - Neutropenic sepsis [Recovered/Resolved]

NARRATIVE: CASE EVENT DATE: 20160608
